FAERS Safety Report 24589565 (Version 1)
Quarter: 2024Q4

REPORT INFORMATION
  Report Type: Spontaneous
  Country: US (occurrence: US)
  Receive Date: 20241107
  Receipt Date: 20241107
  Transmission Date: 20250114
  Serious: No
  Sender: CALLIDITAS THERAPEUTICS AB
  Company Number: US-Calliditas-2024CAL01524

PATIENT
  Age: 64 Year
  Sex: Male
  Weight: 97.5 kg

DRUGS (6)
  1. TARPEYO [Suspect]
     Active Substance: BUDESONIDE
     Indication: IgA nephropathy
     Dosage: TAKE 4 CAPSULES BY MOUTH ONCE DAILY.
     Route: 048
     Dates: start: 20240615
  2. LISINOPRIL [Concomitant]
     Active Substance: LISINOPRIL
  3. CARVEDILOL [Concomitant]
     Active Substance: CARVEDILOL
  4. FUROSEMIDE [Suspect]
     Active Substance: FUROSEMIDE
  5. DIVALPROEX SODIUM [Concomitant]
     Active Substance: DIVALPROEX SODIUM
  6. FEXOFENADINE [Concomitant]
     Active Substance: FEXOFENADINE HYDROCHLORIDE

REACTIONS (8)
  - Eye swelling [Unknown]
  - Peripheral swelling [Not Recovered/Not Resolved]
  - Pain [Unknown]
  - Vision blurred [Unknown]
  - Blood pressure increased [Unknown]
  - Malaise [Unknown]
  - Facial spasm [Unknown]
  - Muscle spasms [Recovering/Resolving]

NARRATIVE: CASE EVENT DATE: 20240801
